FAERS Safety Report 7317852-8 (Version None)
Quarter: 2011Q1

REPORT INFORMATION
  Report Type: 
  Country: None (occurrence: None)
  Receive Date: 20110226
  Receipt Date: 20101216
  Transmission Date: 20110831
  Serious: No
  Sender: FDA-Public Use
  Company Number: US-ALLERGAN-1016379US

PATIENT
  Age: 79 Year
  Sex: Female

DRUGS (4)
  1. BOTOX COSMETIC [Suspect]
     Indication: SKIN WRINKLING
     Dosage: UNK
     Dates: start: 20010101, end: 20010101
  2. ASA [Concomitant]
  3. LOVAZA [Concomitant]
  4. VITAMIN E [Concomitant]

REACTIONS (2)
  - INJECTION SITE RASH [None]
  - INJECTION SITE SWELLING [None]
